FAERS Safety Report 5807318-6 (Version None)
Quarter: 2008Q3

REPORT INFORMATION
  Report Type: 
  Country: None (occurrence: None)
  Receive Date: 20080711
  Receipt Date: 20080703
  Transmission Date: 20090109
  Serious: Yes (Hospitalization)
  Sender: FDA-Public Use
  Company Number: BR-ABBOTT-08P-020-0461039-00

PATIENT
  Sex: Female
  Weight: 48 kg

DRUGS (10)
  1. HUMIRA [Suspect]
     Indication: RHEUMATOID ARTHRITIS
     Route: 058
     Dates: start: 20060701, end: 20070701
  2. HUMIRA [Suspect]
     Dates: start: 20080401
  3. METHOTREXATE [Concomitant]
     Indication: RHEUMATOID ARTHRITIS
     Route: 048
     Dates: start: 20000101
  4. CALCIUM-SANDOZ [Concomitant]
     Indication: RHEUMATOID ARTHRITIS
     Route: 048
  5. VITAMIN A AND C [Concomitant]
     Indication: IMMUNE SYSTEM DISORDER
  6. ACYCLOVIR [Concomitant]
     Indication: GENITAL HERPES
     Route: 048
  7. ACYCLOVIR [Concomitant]
     Route: 061
  8. PREDNISONE TAB [Concomitant]
     Indication: RHEUMATOID ARTHRITIS
     Dates: end: 20080401
  9. PREDNISONE TAB [Concomitant]
     Dates: start: 20080401
  10. NIMESULIDE [Concomitant]
     Indication: RHEUMATOID ARTHRITIS

REACTIONS (6)
  - ARTHRALGIA [None]
  - BONE EROSION [None]
  - GENITAL HERPES [None]
  - OEDEMA PERIPHERAL [None]
  - PAIN [None]
  - URINARY TRACT INFECTION [None]
